FAERS Safety Report 8922006 (Version 1)
Quarter: 2012Q4

REPORT INFORMATION
  Report Type: Spontaneous
  Country: US (occurrence: None)
  Receive Date: 20121120
  Receipt Date: 20121120
  Transmission Date: 20130627
  Serious: Yes (Life-Threatening, Hospitalization, Other)
  Sender: FDA-Public Use
  Company Number: None

PATIENT
  Age: 74 Year
  Sex: Male
  Weight: 81 kg

DRUGS (1)
  1. RITUXIMAB [Suspect]
     Indication: CLL
     Dosage: 375mg/m2  days 1 and 4  IV Drip
     Route: 041
     Dates: start: 20121029, end: 20121102

REACTIONS (5)
  - Pyrexia [None]
  - Rash [None]
  - Joint stiffness [None]
  - Musculoskeletal pain [None]
  - Arthralgia [None]
